FAERS Safety Report 8866785 (Version 1)
Quarter: 2012Q4

REPORT INFORMATION
  Report Type: 
  Country: US (occurrence: US)
  Receive Date: 20121025
  Receipt Date: 20121025
  Transmission Date: 20130627
  Serious: No
  Sender: FDA-Public Use
  Company Number: US-AMGEN-USASP2012013321

PATIENT
  Age: 64 Year
  Sex: Female
  Weight: 83.9 kg

DRUGS (14)
  1. ENBREL [Suspect]
     Indication: PRODUCT USED FOR UNKNOWN INDICATION
     Dosage: 25 mg, 2 times/wk
     Route: 058
  2. PLAQUENIL                          /00072602/ [Concomitant]
     Dosage: 200 mg, UNK
  3. LOMOTIL [Concomitant]
     Dosage: UNK
  4. PREMPRO [Concomitant]
     Dosage: UNK
  5. SERTRALINE [Concomitant]
     Dosage: 100 mg, UNK
  6. PROVENTIL                          /00139501/ [Concomitant]
     Dosage: UNK
  7. LISINOPRIL [Concomitant]
     Dosage: 10 mg, UNK
  8. WELLBUTRIN [Concomitant]
     Dosage: 150 mg, UNK
  9. PRILOSEC                           /00661201/ [Concomitant]
     Dosage: 40 mg, UNK
  10. PREDNISONE [Concomitant]
     Dosage: 10 mg, UNK
  11. TRAMADOL HCL [Concomitant]
     Dosage: 200 mg, UNK
  12. QVAR [Concomitant]
     Dosage: UNK
  13. LEUCOVORIN /00566701/ [Concomitant]
     Dosage: 200 mg, UNK
  14. METHOTREXATE [Concomitant]
     Dosage: 20 mg, UNK

REACTIONS (2)
  - Rib fracture [Unknown]
  - Nasopharyngitis [Unknown]
